FAERS Safety Report 8337085-6 (Version None)
Quarter: 2012Q2

REPORT INFORMATION
  Report Type: 
  Country: None (occurrence: None)
  Receive Date: 20120504
  Receipt Date: 20110708
  Transmission Date: 20120825
  Serious: No
  Sender: FDA-Public Use
  Company Number: US-TEVA-2011003650

PATIENT
  Sex: Female

DRUGS (3)
  1. NUVIGIL [Suspect]
     Indication: SOMNOLENCE
     Route: 048
  2. EFFEXOR [Concomitant]
  3. VALIUM [Concomitant]

REACTIONS (1)
  - DYSGEUSIA [None]
